FAERS Safety Report 4455164-0 (Version None)
Quarter: 2004Q3

REPORT INFORMATION
  Report Type: 
  Country: None (occurrence: None)
  Receive Date: 20040917
  Receipt Date: 20040901
  Transmission Date: 20050211
  Serious: Yes (Other)
  Sender: FDA-Public Use
  Company Number: 2004-BP-07538BP

PATIENT
  Sex: Male

DRUGS (2)
  1. MIRAPEX [Suspect]
     Indication: PARKINSON'S DISEASE
     Dosage: 4.5 MG (0.5 MG, 1.5MG TID), PO
     Route: 048
     Dates: start: 20030501
  2. SELEGELINE HYDROCHLORIDE [Concomitant]

REACTIONS (1)
  - GAMBLING [None]
